FAERS Safety Report 14679433 (Version 6)
Quarter: 2019Q3

REPORT INFORMATION
  Report Type: Report from Study
  Country: FR (occurrence: FR)
  Receive Date: 20180326
  Receipt Date: 20190925
  Transmission Date: 20191004
  Serious: Yes (Death, Hospitalization, Other)
  Sender: FDA-Public Use
  Company Number: PHHY2018FR051664

PATIENT
  Age: 54 Year
  Sex: Male
  Weight: 63 kg

DRUGS (2)
  1. VOTRIENT [Suspect]
     Active Substance: PAZOPANIB HYDROCHLORIDE
     Indication: RENAL CANCER METASTATIC
     Dosage: 800 MG, QD
     Route: 048
     Dates: start: 20180130, end: 20180219
  2. VOTRIENT [Suspect]
     Active Substance: PAZOPANIB HYDROCHLORIDE
     Dosage: 600 MG, QD
     Route: 048
     Dates: start: 20180301, end: 20180517

REACTIONS (15)
  - Sepsis [Fatal]
  - Metastases to central nervous system [Unknown]
  - Facial paralysis [Unknown]
  - Pulmonary embolism [Recovered/Resolved]
  - Dyspnoea [Unknown]
  - Pneumothorax [Fatal]
  - Muscular weakness [Unknown]
  - General physical health deterioration [Fatal]
  - General physical health deterioration [Recovered/Resolved]
  - Decreased appetite [Recovered/Resolved]
  - Urinary retention [Unknown]
  - Haematuria [Unknown]
  - Epistaxis [Recovered/Resolved]
  - Diarrhoea [Recovered/Resolved]
  - Respiratory distress [Fatal]

NARRATIVE: CASE EVENT DATE: 201802
